FAERS Safety Report 12586309 (Version 1)
Quarter: 2016Q3

REPORT INFORMATION
  Report Type: Spontaneous
  Country: US (occurrence: None)
  Receive Date: 20160722
  Receipt Date: 20160722
  Transmission Date: 20161109
  Serious: Yes (Other)
  Sender: FDA-Public Use
  Company Number: None

PATIENT
  Age: 9 Year
  Sex: Female
  Weight: 29.03 kg

DRUGS (1)
  1. STRATTERA [Suspect]
     Active Substance: ATOMOXETINE HYDROCHLORIDE
     Indication: ATTENTION DEFICIT/HYPERACTIVITY DISORDER
     Dosage: 30 CAPSULE(S)   IN THE MORNING  TAKEN BY MOUTH
     Route: 048
     Dates: start: 20151203

REACTIONS (2)
  - Weight decreased [None]
  - Abdominal pain upper [None]

NARRATIVE: CASE EVENT DATE: 20160701
